FAERS Safety Report 6431894-6 (Version None)
Quarter: 2009Q4

REPORT INFORMATION
  Report Type: 
  Country: None (occurrence: None)
  Receive Date: 20091109
  Receipt Date: 20091102
  Transmission Date: 20100525
  Serious: Yes (Death)
  Sender: FDA-Public Use
  Company Number: US-BIOGENIDEC-2009BI030159

PATIENT
  Age: 55 Year
  Sex: Male

DRUGS (11)
  1. TYSABRI [Suspect]
     Indication: SECONDARY PROGRESSIVE MULTIPLE SCLEROSIS
     Route: 042
     Dates: start: 20080118, end: 20090909
  2. ASPIRIN [Concomitant]
  3. OMEPRAZOLE [Concomitant]
  4. CYMBALTA [Concomitant]
  5. ALPRAZOLAM [Concomitant]
  6. BACLOFEN [Concomitant]
  7. ACAI BERRY [Concomitant]
  8. MULTI-VITAMIN [Concomitant]
  9. VITAMIN B COMPLEX CAP [Concomitant]
  10. VITAMIN D3 [Concomitant]
  11. ZINC [Concomitant]

REACTIONS (1)
  - PULMONARY EMBOLISM [None]
